FAERS Safety Report 9904338 (Version 1)
Quarter: 2014Q1

REPORT INFORMATION
  Report Type: Spontaneous
  Country: US (occurrence: US)
  Receive Date: 20140218
  Receipt Date: 20140218
  Transmission Date: 20141002
  Serious: Yes (Other)
  Sender: FDA-Public Use
  Company Number: US-PFIZER INC-2014043729

PATIENT
  Age: 74 Year
  Sex: Female

DRUGS (4)
  1. EFFEXOR XR [Suspect]
     Dosage: 75 MG, 1X/DAY
     Route: 048
     Dates: start: 20140211, end: 201402
  2. METOPROLOL [Concomitant]
     Indication: HYPERTENSION
     Dosage: UNK
  3. TEGRETOL [Concomitant]
     Dosage: UNK
  4. VITAMIN B12 [Concomitant]
     Dosage: UNK

REACTIONS (7)
  - Convulsion [Unknown]
  - Anaemia [Unknown]
  - Hearing impaired [Unknown]
  - Chills [Unknown]
  - Weight decreased [Unknown]
  - Fear of death [Unknown]
  - Nasopharyngitis [Unknown]
